FAERS Safety Report 4890053-9 (Version None)
Quarter: 2006Q1

REPORT INFORMATION
  Report Type: 
  Country: None (occurrence: None)
  Receive Date: 20060120
  Receipt Date: 20060104
  Transmission Date: 20060701
  Serious: Yes (Other)
  Sender: FDA-Public Use
  Company Number: DSA_27613_2006

PATIENT
  Age: 83 Year
  Sex: Female

DRUGS (4)
  1. RENIVACE [Suspect]
     Indication: ESSENTIAL HYPERTENSION
     Dosage: 5 MG Q DAY PO
     Route: 048
     Dates: start: 20020201, end: 20020501
  2. CEROCRAL [Concomitant]
  3. SELBEX [Concomitant]
  4. VOLTAREN [Concomitant]

REACTIONS (5)
  - ANGIONEUROTIC OEDEMA [None]
  - BLOOD IMMUNOGLOBULIN A INCREASED [None]
  - BLOOD PRESSURE INCREASED [None]
  - C-REACTIVE PROTEIN INCREASED [None]
  - COMPLEMENT FACTOR INCREASED [None]
